FAERS Safety Report 10060708 (Version 1)
Quarter: 2014Q2

REPORT INFORMATION
  Report Type: Spontaneous
  Country: US (occurrence: US)
  Receive Date: 20140404
  Receipt Date: 20140404
  Transmission Date: 20141212
  Serious: No
  Sender: FDA-Public Use
  Company Number: US-GILEAD-2014-0098738

PATIENT
  Sex: Male

DRUGS (2)
  1. LETAIRIS [Suspect]
     Indication: PRODUCT USED FOR UNKNOWN INDICATION
     Dosage: 5 MG, QD
     Route: 065
     Dates: start: 20140320
  2. MACITENTAN [Concomitant]

REACTIONS (6)
  - Muscular weakness [Unknown]
  - Unevaluable event [Unknown]
  - Dysgeusia [Unknown]
  - Peripheral swelling [Unknown]
  - Joint swelling [Unknown]
  - Peripheral swelling [Unknown]
